FAERS Safety Report 7039858-9 (Version None)
Quarter: 2010Q3

REPORT INFORMATION
  Report Type: 
  Country: None (occurrence: None)
  Receive Date: 20100929
  Receipt Date: 20100628
  Transmission Date: 20110219
  Serious: Yes (Other)
  Sender: FDA-Public Use
  Company Number: US-WYE-H15879010

PATIENT
  Age: 26 Year
  Sex: Female

DRUGS (1)
  1. PRISTIQ [Suspect]
     Dosage: 50 MG WAS STARTED ON AN UNSPECIFED DATE

REACTIONS (1)
  - SEROTONIN SYNDROME [None]
